FAERS Safety Report 6031888-9 (Version None)
Quarter: 2008Q4

REPORT INFORMATION
  Report Type: 
  Country: None (occurrence: None)
  Receive Date: 20081229
  Receipt Date: 20071210
  Transmission Date: 20090506
  Serious: Yes (Hospitalization)
  Sender: FDA-Public Use
  Company Number: WAES 0712USA06396

PATIENT
  Age: 60 Year
  Sex: Male

DRUGS (1)
  1. ZETIA [Suspect]
     Indication: HYPOLIPIDAEMIA
     Dosage: PO
     Route: 048
     Dates: end: 20060816

REACTIONS (1)
  - LIVER FUNCTION TEST ABNORMAL [None]
